FAERS Safety Report 7726966-X (Version None)
Quarter: 2011Q3

REPORT INFORMATION
  Report Type: 
  Country: None (occurrence: None)
  Receive Date: 20110902
  Receipt Date: 20110830
  Transmission Date: 20111222
  Serious: Yes (Hospitalization)
  Sender: FDA-Public Use
  Company Number: FR-PFIZER INC-2011201563

PATIENT
  Age: 85 Year
  Sex: Male

DRUGS (11)
  1. RABEPRAZOLE SODIUM [Concomitant]
     Dosage: UNK
  2. COLCHICINE [Suspect]
     Dosage: UNK
     Route: 048
     Dates: start: 20110502, end: 20110509
  3. ACETAMINOPHEN [Concomitant]
     Dosage: UNK
  4. VALSARTAN [Concomitant]
     Dosage: UNK
  5. DOMPERIDONE [Concomitant]
     Dosage: UNK
  6. ATORVASTATIN CALCIUM [Suspect]
     Dosage: UNK
     Route: 048
     Dates: start: 20110508, end: 20110509
  7. NORMACOL [Concomitant]
     Dosage: UNK
  8. MORPHINE SULFATE [Concomitant]
     Dosage: UNK
  9. PREDNISOLONE [Concomitant]
     Dosage: 5 MG, UNK
  10. COLECALCIFEROL [Concomitant]
     Dosage: UNK
  11. MORPHINE SULFATE [Concomitant]
     Dosage: UNK

REACTIONS (4)
  - HEPATIC FAILURE [None]
  - CHOLESTASIS [None]
  - CYTOLYTIC HEPATITIS [None]
  - SCIATICA [None]
